FAERS Safety Report 7240847-X (Version None)
Quarter: 2011Q1

REPORT INFORMATION
  Report Type: 
  Country: None (occurrence: None)
  Receive Date: 20110120
  Receipt Date: 20110120
  Transmission Date: 20110831
  Serious: Yes (Other)
  Sender: FDA-Public Use
  Company Number: None

PATIENT
  Sex: Female
  Weight: 96.6162 kg

DRUGS (1)
  1. MUPIROCIN [Suspect]
     Indication: LACERATION
     Dates: start: 20100807, end: 20101201

REACTIONS (2)
  - CELLULITIS [None]
  - PRODUCT CONTAMINATION MICROBIAL [None]
